FAERS Safety Report 20345496 (Version 1)
Quarter: 2022Q1

REPORT INFORMATION
  Report Type: Spontaneous
  Country: US (occurrence: None)
  Receive Date: 20220114
  Receipt Date: 20220114
  Transmission Date: 20220423
  Serious: No
  Sender: FDA-Public Use
  Company Number: None

PATIENT
  Age: 10 Year
  Sex: Male
  Weight: 23 kg

DRUGS (1)
  1. TRIKAFTA [Suspect]
     Active Substance: ELEXACAFTOR\IVACAFTOR\TEZACAFTOR
     Indication: Cystic fibrosis
     Dates: start: 20211229, end: 20220104

REACTIONS (5)
  - Rash [None]
  - Pruritus [None]
  - Rhinorrhoea [None]
  - Erythema [None]
  - Nasal congestion [None]

NARRATIVE: CASE EVENT DATE: 20220104
